FAERS Safety Report 16155195 (Version 1)
Quarter: 2019Q2

REPORT INFORMATION
  Report Type: Spontaneous
  Country: US (occurrence: US)
  Receive Date: 20190403
  Receipt Date: 20190403
  Transmission Date: 20190711
  Serious: No
  Sender: FDA-Public Use
  Company Number: US-AMERIGEN PHARMACEUTICALS, INC-2019AMG000007

PATIENT

DRUGS (3)
  1. GABAPENTIN. [Concomitant]
     Active Substance: GABAPENTIN
     Indication: NEUROPATHY PERIPHERAL
     Dosage: UNK
     Route: 065
  2. CARBIDOPA. [Suspect]
     Active Substance: CARBIDOPA
     Dosage: 1.5 DF, QID
     Route: 048
  3. CARBIDOPA. [Suspect]
     Active Substance: CARBIDOPA
     Indication: PARKINSON^S DISEASE
     Dosage: 2 DF, QID
     Route: 048

REACTIONS (2)
  - Gait disturbance [Unknown]
  - Asthenia [Unknown]
